FAERS Safety Report 11578237 (Version 1)
Quarter: 2015Q3

REPORT INFORMATION
  Report Type: Other
  Country: US (occurrence: US)
  Receive Date: 20150930
  Receipt Date: 20150930
  Transmission Date: 20151125
  Serious: Yes (Other)
  Sender: FDA-Public Use
  Company Number: US-DEP_12686_2015

PATIENT
  Sex: Female
  Weight: 76 kg

DRUGS (8)
  1. HYDROCODONE [Concomitant]
     Active Substance: HYDROCODONE
     Indication: JOINT DISLOCATION
     Route: 048
     Dates: start: 2015
  2. NUCYNTA [Suspect]
     Active Substance: TAPENTADOL HYDROCHLORIDE
     Indication: OFF LABEL USE
     Dosage: VARYING DOSAGES
     Route: 048
     Dates: start: 2015, end: 2015
  3. NUCYNTA ER [Suspect]
     Active Substance: TAPENTADOL HYDROCHLORIDE
     Indication: PAIN
     Route: 048
     Dates: start: 2015, end: 2015
  4. NUCYNTA ER [Suspect]
     Active Substance: TAPENTADOL HYDROCHLORIDE
     Indication: JOINT DISLOCATION
     Route: 048
     Dates: start: 2015, end: 2015
  5. NUCYNTA [Suspect]
     Active Substance: TAPENTADOL HYDROCHLORIDE
     Indication: JOINT DISLOCATION
     Dosage: VARYING DOSAGES
     Route: 048
     Dates: end: 2015
  6. MS CONTIN [Suspect]
     Active Substance: MORPHINE SULFATE
     Indication: PRODUCT USED FOR UNKNOWN INDICATION
     Dosage: 5 OR 10 MG
     Dates: start: 201509, end: 201509
  7. NUCYNTA [Suspect]
     Active Substance: TAPENTADOL HYDROCHLORIDE
     Indication: PAIN
     Dosage: VARYING DOSAGES
     Route: 048
     Dates: start: 2015, end: 2015
  8. HYDROCODONE [Concomitant]
     Active Substance: HYDROCODONE
     Indication: DYSTONIA
     Route: 048
     Dates: start: 2015

REACTIONS (7)
  - Dystonia [Not Recovered/Not Resolved]
  - Palpitations [Unknown]
  - Energy increased [Recovered/Resolved]
  - Drug hypersensitivity [Unknown]
  - Drug ineffective for unapproved indication [Recovered/Resolved]
  - Blood pressure increased [Recovered/Resolved]
  - Panic attack [Recovered/Resolved]

NARRATIVE: CASE EVENT DATE: 2015
